FAERS Safety Report 17258688 (Version 1)
Quarter: 2020Q1

REPORT INFORMATION
  Report Type: Spontaneous
  Country: ES (occurrence: ES)
  Receive Date: 20200110
  Receipt Date: 20200110
  Transmission Date: 20200409
  Serious: Yes (Other)
  Sender: FDA-Public Use
  Company Number: ES-MYLANLABS-2020M1002710

PATIENT
  Age: 6 Year
  Sex: Male
  Weight: 26 kg

DRUGS (2)
  1. MINOXIDIL. [Suspect]
     Active Substance: MINOXIDIL
     Indication: PRODUCT USED FOR UNKNOWN INDICATION
     Dosage: 8 MILLIGRAM, QD
     Route: 048
     Dates: start: 20190703, end: 20190715
  2. OMEPRAZOLE. [Suspect]
     Active Substance: OMEPRAZOLE
     Indication: GASTROOESOPHAGEAL REFLUX DISEASE
     Dosage: 8ML/24 HORAS
     Route: 048
     Dates: start: 20190703, end: 20190715

REACTIONS (2)
  - Hypertrichosis [Unknown]
  - Product formulation issue [Recovered/Resolved]

NARRATIVE: CASE EVENT DATE: 20190703
